FAERS Safety Report 5097737-0 (Version None)
Quarter: 2006Q3

REPORT INFORMATION
  Report Type: 
  Country: None (occurrence: None)
  Receive Date: 20060901
  Receipt Date: 20060819
  Transmission Date: 20061208
  Serious: Yes (Other)
  Sender: FDA-Public Use
  Company Number: 2006080734

PATIENT
  Age: 75 Year
  Sex: Male
  Weight: 83.9154 kg

DRUGS (15)
  1. LYRICA [Suspect]
     Indication: HEADACHE
     Dosage: 225 MG (75 MG, 3 IN 1 D)
     Dates: start: 20051109, end: 20060621
  2. LYRICA [Suspect]
     Indication: PAIN
     Dosage: 225 MG (75 MG, 3 IN 1 D)
     Dates: start: 20051109, end: 20060621
  3. LYRICA [Suspect]
     Indication: POST HERPETIC NEURALGIA
     Dosage: 225 MG (75 MG, 3 IN 1 D)
     Dates: start: 20051109, end: 20060621
  4. VICODIN [Concomitant]
  5. ASPIRIN [Concomitant]
  6. ZETIA [Concomitant]
  7. PREVACID [Concomitant]
  8. GLIPIZIDE [Concomitant]
  9. SYNTHROID [Concomitant]
  10. LISINOPRIL [Concomitant]
  11. WARFARIN SODIUM [Concomitant]
  12. ATACAND [Concomitant]
  13. NADOLOL [Concomitant]
  14. CRESTOR [Concomitant]
  15. BACLOFEN [Concomitant]

REACTIONS (5)
  - ASTHENIA [None]
  - MUSCULAR WEAKNESS [None]
  - OEDEMA PERIPHERAL [None]
  - SKIN DISORDER [None]
  - VASCULITIS [None]
